FAERS Safety Report 15555960 (Version 1)
Quarter: 2018Q4

REPORT INFORMATION
  Report Type: Report from Study
  Country: US (occurrence: US)
  Receive Date: 20181026
  Receipt Date: 20181026
  Transmission Date: 20190205
  Serious: Yes (Other)
  Sender: FDA-Public Use
  Company Number: US-TESARO-US-2018TSO03667

PATIENT
  Age: 84 Year
  Sex: Female

DRUGS (2)
  1. ZEJULA [Suspect]
     Active Substance: NIRAPARIB
     Dosage: 200 MG, QD [PATIENT STILL HAS UNOPENED PACKAGE OF ZEJULA AT HOME]
     Route: 048
  2. ZEJULA [Suspect]
     Active Substance: NIRAPARIB
     Indication: OVARIAN CANCER
     Dosage: 200 MG, QD
     Route: 048
     Dates: start: 20180627

REACTIONS (18)
  - Cerebrovascular accident [Not Recovered/Not Resolved]
  - Intentional underdose [Not Recovered/Not Resolved]
  - Muscular weakness [Not Recovered/Not Resolved]
  - Fatigue [Unknown]
  - Nervousness [Unknown]
  - Carbohydrate antigen 125 increased [Not Recovered/Not Resolved]
  - Anxiety [Not Recovered/Not Resolved]
  - Blood pressure increased [Not Recovered/Not Resolved]
  - Sleep disorder [Unknown]
  - Grief reaction [Unknown]
  - Platelet count decreased [Not Recovered/Not Resolved]
  - Constipation [Not Recovered/Not Resolved]
  - Solar lentigo [Not Recovered/Not Resolved]
  - Dysarthria [Not Recovered/Not Resolved]
  - Hepatic enzyme increased [Recovered/Resolved]
  - Walking aid user [Recovering/Resolving]
  - Performance status decreased [Unknown]
  - Headache [Not Recovered/Not Resolved]

NARRATIVE: CASE EVENT DATE: 20180627
